FAERS Safety Report 8179272-6 (Version None)
Quarter: 2012Q1

REPORT INFORMATION
  Report Type: 
  Country: None (occurrence: None)
  Receive Date: 20120229
  Receipt Date: 20120229
  Transmission Date: 20120608
  Serious: Yes (Other)
  Sender: FDA-Public Use
  Company Number: None

PATIENT
  Sex: Female
  Weight: 88.905 kg

DRUGS (3)
  1. CIPRO [Suspect]
     Indication: SINUSITIS
     Dosage: 500 2 X DAY ORAL
     Route: 048
     Dates: start: 20100928
  2. LEVAQUIN [Suspect]
     Dosage: 500 2 X DAY ORAL
     Route: 048
     Dates: start: 20101011
  3. LEVAQUIN [Suspect]
     Dosage: 500 2 X DAY ORAL
     Route: 048
     Dates: start: 20101005

REACTIONS (7)
  - VISUAL IMPAIRMENT [None]
  - PAIN [None]
  - TENDONITIS [None]
  - JOINT CREPITATION [None]
  - NO THERAPEUTIC RESPONSE [None]
  - FATIGUE [None]
  - GAIT DISTURBANCE [None]
